FAERS Safety Report 4849125-7 (Version None)
Quarter: 2005Q4

REPORT INFORMATION
  Report Type: 
  Country: None (occurrence: None)
  Receive Date: 20051209
  Receipt Date: 20051201
  Transmission Date: 20060501
  Serious: Yes (Hospitalization)
  Sender: FDA-Public Use
  Company Number: BE-GLAXOSMITHKLINE-B0402908A

PATIENT
  Age: 76 Year
  Sex: Male
  Weight: 80 kg

DRUGS (5)
  1. LANOXIN [Suspect]
     Indication: ATRIAL FIBRILLATION
     Dosage: .25MG PER DAY
     Route: 048
     Dates: end: 20050915
  2. QUINIDINE HCL [Concomitant]
     Dosage: 1TAB PER DAY
     Route: 048
     Dates: end: 20050915
  3. ASAFLOW [Concomitant]
     Dosage: 1TAB PER DAY
     Route: 048
  4. AVELOX [Concomitant]
     Indication: BRONCHITIS
     Dates: start: 20050910, end: 20050919
  5. COUGH MEDICINE UNKNOWN [Concomitant]
     Dosage: 1SP THREE TIMES PER DAY

REACTIONS (4)
  - ABDOMINAL DISTENSION [None]
  - OVERDOSE [None]
  - RENAL FAILURE [None]
  - VERTIGO [None]
